FAERS Safety Report 7928272-7 (Version None)
Quarter: 2011Q4

REPORT INFORMATION
  Report Type: 
  Country: None (occurrence: None)
  Receive Date: 20111118
  Receipt Date: 20111110
  Transmission Date: 20120403
  Serious: Yes (Hospitalization, Disabling)
  Sender: FDA-Public Use
  Company Number: JP-MERCK-1108USA00245

PATIENT
  Age: 74 Year
  Sex: Female

DRUGS (21)
  1. KAMAG G [Concomitant]
     Indication: CONSTIPATION
     Route: 048
  2. BERIZYM (ASPERGILLUS ORYZAE EXTRACT (+) CELLULASE (+) LIPASE (+) PANCR [Concomitant]
     Route: 048
  3. SAWADOL L [Concomitant]
     Indication: ANGINA PECTORIS
     Route: 048
  4. MEDEPOLIN [Concomitant]
     Indication: ANXIETY DISORDER
     Route: 048
  5. LANIRAPID [Concomitant]
     Indication: CARDIAC FAILURE
     Route: 048
  6. OPAPROSMON [Concomitant]
     Indication: SPINAL COLUMN STENOSIS
     Route: 048
  7. LENDORMIN [Concomitant]
     Route: 048
  8. EVAMYL [Concomitant]
     Route: 048
  9. GLAKAY [Concomitant]
     Route: 048
  10. PHENOBARBITAL TAB [Suspect]
     Indication: INSOMNIA
     Route: 048
     Dates: end: 20110726
  11. ZOCOR [Suspect]
     Route: 048
     Dates: end: 20110726
  12. THEO-DUR [Suspect]
     Indication: ASTHMA
     Route: 048
     Dates: end: 20110726
  13. GASMOTIN [Concomitant]
     Route: 048
  14. SIGMART [Concomitant]
     Route: 048
  15. MUCOSOLVAN L [Concomitant]
     Route: 048
  16. AMLODIPINE [Concomitant]
     Indication: HYPERTENSION
     Route: 048
  17. NITRODERM [Concomitant]
     Route: 061
  18. PEPCID [Suspect]
     Indication: GASTRITIS
     Route: 048
     Dates: end: 20110726
  19. HOKUNALIN [Concomitant]
     Route: 061
  20. IRSOGLADINE MALEATE [Concomitant]
     Indication: GASTRITIS
     Route: 048
  21. MEPTIN [Concomitant]
     Indication: ASTHMA
     Route: 048

REACTIONS (2)
  - RENAL FAILURE ACUTE [None]
  - RHABDOMYOLYSIS [None]
